FAERS Safety Report 5368208-9 (Version None)
Quarter: 2007Q2

REPORT INFORMATION
  Report Type: 
  Country: None (occurrence: None)
  Receive Date: 20070625
  Receipt Date: 20070619
  Transmission Date: 20071010
  Serious: Yes (Hospitalization, Other)
  Sender: FDA-Public Use
  Company Number: US-BAYER-200711211BCC

PATIENT
  Age: 67 Year
  Sex: Female
  Weight: 95 kg

DRUGS (10)
  1. ASPIRIN [Suspect]
     Indication: CARDIOVASCULAR EVENT PROPHYLAXIS
     Dosage: TOTAL DAILY DOSE: 81 MG  UNIT DOSE: 81 MG
     Route: 048
     Dates: start: 19990101
  2. ONE A DAY 50 PLUS [Suspect]
     Indication: VITAMIN SUPPLEMENTATION
     Route: 048
  3. FELDENE [Concomitant]
     Dosage: TOTAL DAILY DOSE: 20 MG  UNIT DOSE: 20 MG
     Route: 048
  4. GLUCOVANCE [Concomitant]
     Dosage: AS USED: 5/500 MG
     Route: 048
  5. ZETIA [Concomitant]
     Route: 048
  6. LOTREL [Concomitant]
     Route: 048
  7. ATENOLOL [Concomitant]
     Dosage: TOTAL DAILY DOSE: 25 MG  UNIT DOSE: 25 MG
     Route: 048
  8. LIPITOR [Concomitant]
     Dosage: TOTAL DAILY DOSE: 40 MG  UNIT DOSE: 40 MG
     Route: 048
  9. VESICARE [Concomitant]
     Dosage: TOTAL DAILY DOSE: 5 MG  UNIT DOSE: 5 MG
     Route: 048
  10. BYETTA [Concomitant]
     Route: 058
     Dates: start: 20050801, end: 20060901

REACTIONS (6)
  - BLOOD MAGNESIUM DECREASED [None]
  - CARDIAC STRESS TEST ABNORMAL [None]
  - HYPERTENSION [None]
  - PALPITATIONS [None]
  - VENTRICULAR EXTRASYSTOLES [None]
  - VENTRICULAR TACHYCARDIA [None]
